FAERS Safety Report 20637945 (Version 1)
Quarter: 2022Q1

REPORT INFORMATION
  Report Type: Spontaneous
  Country: AR (occurrence: AR)
  Receive Date: 20220325
  Receipt Date: 20220325
  Transmission Date: 20220423
  Serious: Yes (Other)
  Sender: FDA-Public Use
  Company Number: AR-PFIZER INC-202200411131

PATIENT
  Age: 85 Year
  Sex: Female

DRUGS (1)
  1. AMLODIPINE BESYLATE [Suspect]
     Active Substance: AMLODIPINE BESYLATE
     Dosage: 0.5 DF, SINGLE

REACTIONS (4)
  - Optic ischaemic neuropathy [Recovered/Resolved]
  - Haematochezia [Recovered/Resolved]
  - Inflammation [Unknown]
  - Skin ulcer [Unknown]
